FAERS Safety Report 19000981 (Version 1)
Quarter: 2021Q1

REPORT INFORMATION
  Report Type: Report from Study
  Country: None (occurrence: US)
  Receive Date: 20210311
  Receipt Date: 20210311
  Transmission Date: 20210420
  Serious: Yes (Other)
  Sender: FDA-Public Use
  Company Number: US-ABBVIE-21K-163-3772660-00

PATIENT
  Age: 72 Year
  Sex: Female

DRUGS (2)
  1. HUMIRA [Suspect]
     Active Substance: ADALIMUMAB
     Dosage: CITRATE FREE
     Route: 058
  2. HUMIRA [Suspect]
     Active Substance: ADALIMUMAB
     Indication: CROHN^S DISEASE
     Dosage: CITRATE FREE
     Route: 058

REACTIONS (9)
  - Bursitis [Not Recovered/Not Resolved]
  - Illness [Recovered/Resolved]
  - Nausea [Not Recovered/Not Resolved]
  - Gait disturbance [Unknown]
  - Abdominal pain upper [Not Recovered/Not Resolved]
  - Abdominal discomfort [Recovering/Resolving]
  - Pain [Unknown]
  - Back pain [Not Recovered/Not Resolved]
  - Large intestine polyp [Unknown]

NARRATIVE: CASE EVENT DATE: 20210211
